FAERS Safety Report 6495236-2 (Version None)
Quarter: 2009Q4

REPORT INFORMATION
  Report Type: 
  Country: None (occurrence: None)
  Receive Date: 20091214
  Receipt Date: 20090515
  Transmission Date: 20100525
  Serious: Yes (Hospitalization)
  Sender: FDA-Public Use
  Company Number: US-BRISTOL-MYERS SQUIBB COMPANY-14627830

PATIENT
  Age: 21 Year
  Sex: Male

DRUGS (3)
  1. ABILIFY [Suspect]
  2. LAMICTAL [Suspect]
     Dosage: 100MG TABLET; PRESCRIBED AS 200MG ONCE A DAY
     Route: 048
  3. CYMBALTA [Suspect]
     Dosage: TABLET

REACTIONS (2)
  - OVERDOSE [None]
  - SUICIDE ATTEMPT [None]
